FAERS Safety Report 6882633-6 (Version None)
Quarter: 2010Q3

REPORT INFORMATION
  Report Type: 
  Country: None (occurrence: None)
  Receive Date: 20100729
  Receipt Date: 20100719
  Transmission Date: 20110219
  Serious: Yes (Hospitalization)
  Sender: FDA-Public Use
  Company Number: BR-ROCHE-703089

PATIENT
  Sex: Female
  Weight: 70 kg

DRUGS (17)
  1. TOCILIZUMAB [Suspect]
     Indication: RHEUMATOID ARTHRITIS
     Dosage: FORM: INFUSION
     Route: 042
     Dates: start: 20100415, end: 20100415
  2. APROVEL [Concomitant]
  3. CONCOR [Concomitant]
  4. HYGROTON [Concomitant]
  5. ARAVA [Concomitant]
  6. PANTOPRAZOLE SODIUM [Concomitant]
  7. SIMVASTATIN [Concomitant]
  8. AMITRIL [Concomitant]
     Indication: DEPRESSION
     Dates: start: 20060101
  9. OMEPRAZOLE [Concomitant]
  10. DRAMIN [Concomitant]
  11. IMOSEC [Concomitant]
  12. SINVASTACOR [Concomitant]
  13. PREDNIS [Concomitant]
  14. RETEMIC [Concomitant]
  15. BICONCOR (R) [Concomitant]
     Dosage: NAME: BICONCOR
  16. REPOFLOR [Concomitant]
  17. IBUPROFENO [Concomitant]

REACTIONS (10)
  - COMA [None]
  - DYSPNOEA [None]
  - GAIT DISTURBANCE [None]
  - HYPOPHAGIA [None]
  - INFECTION [None]
  - MICTURITION DISORDER [None]
  - PALPITATIONS [None]
  - PNEUMONIA [None]
  - URINARY INCONTINENCE [None]
  - URINARY TRACT INFECTION [None]
